FAERS Safety Report 9917247 (Version 2)
Quarter: 2014Q2

REPORT INFORMATION
  Report Type: Spontaneous
  Country: US (occurrence: US)
  Receive Date: 20140221
  Receipt Date: 20140407
  Transmission Date: 20141212
  Serious: No
  Sender: FDA-Public Use
  Company Number: US-GILEAD-2014-0094454

PATIENT
  Age: 40 Year
  Sex: Female

DRUGS (6)
  1. SOVALDI [Suspect]
     Indication: HEPATITIS C
     Dosage: UNK
     Route: 065
     Dates: start: 20140203
  2. PEGINTERFERON ALFA [Concomitant]
     Dosage: 180 ?G, Q1WK
     Dates: start: 201402
  3. RIBAVIRIN [Concomitant]
     Dosage: 400 UNKNOWN, BID
     Dates: start: 201402
  4. ATIVAN [Concomitant]
     Dosage: 1 MG, QD
     Route: 048
  5. WELLBUTRIN [Concomitant]
     Dosage: 75 UNKNOWN, QD
  6. PROZAC [Concomitant]
     Dosage: 40 UNKNOWN, QD

REACTIONS (1)
  - Rash generalised [Recovered/Resolved]
